FAERS Safety Report 8783523 (Version 1)
Quarter: 2012Q4

REPORT INFORMATION
  Report Type: 
  Country: IE (occurrence: IE)
  Receive Date: 20120913
  Receipt Date: 20120913
  Transmission Date: 20130627
  Serious: Yes (Other)
  Sender: FDA-Public Use
  Company Number: IE-MYLANLABS-2012S1018482

PATIENT
  Age: 5 None
  Sex: Male

DRUGS (1)
  1. METHADONE [Suspect]
     Indication: DRUG WITHDRAWAL MAINTENANCE THERAPY
     Dosage: 80mg daily (supervised dispension) in Mar 2009
     Route: 065

REACTIONS (9)
  - Hypothalamo-pituitary disorder [Recovering/Resolving]
  - Hypogonadism male [Recovering/Resolving]
  - Treatment noncompliance [None]
  - Bronchiectasis [None]
  - Gynaecomastia [None]
  - Galactorrhoea [None]
  - Sexual dysfunction [None]
  - Libido decreased [None]
  - Fatigue [None]
